FAERS Safety Report 19171771 (Version 2)
Quarter: 2021Q2

REPORT INFORMATION
  Report Type: Spontaneous
  Country: NL (occurrence: NL)
  Receive Date: 20210423
  Receipt Date: 20210516
  Transmission Date: 20210717
  Serious: Yes (Death, Hospitalization, Other)
  Sender: FDA-Public Use
  Company Number: NL-TEVA-2021-NL-1902913

PATIENT
  Age: 81 Year
  Sex: Male
  Weight: 75 kg

DRUGS (11)
  1. RIVAROXABAN TABLET 15MG / BRAND NAME NOT SPECIFIED [Suspect]
     Active Substance: RIVAROXABAN
     Indication: ATRIAL FIBRILLATION
     Dosage: 15 MILLIGRAM DAILY;
     Dates: start: 201309, end: 20210312
  2. METOPROLOL TABLET MGA  50MG (SUCCINAAT) / BRAND NAME NOT SPECIFIED [Concomitant]
     Active Substance: METOPROLOL SUCCINATE
     Dosage: THERAPY START DATE ASKU, THERAPY END DATE ASKU, 50 MG (MILLIGRAM)
  3. IRBESARTAN TABLET 150MG / APROVEL TABLET FILMOMHULD 150MG [Concomitant]
     Dosage: THERAPY START DATE ASKU, THERAPY END DATE ASKU, 150 MG (MILLIGRAM)
  4. NITROFURANTOINE CAPSULE MGA 100MG / FURABID CAPSULE MGA 100MG [Concomitant]
     Dosage: THERAPY END DATE ASKU
     Dates: start: 20210305
  5. MACROGOL/ZOUTEN PDR V DRANK (MOVIC/MOLAX/LAXT/GEN) / MOVICOLON POEDER [Concomitant]
     Dosage: POWDER FOR DRINK IN SACHET, 1DF,THERAPY START DATE ASKU, THERAPY END DATE ASKU
  6. ATORVASTATINE TABLET 40MG / BRAND NAME NOT SPECIFIED [Concomitant]
     Active Substance: ATORVASTATIN
     Dosage: THERAPY START DATE ASKU, THERAPY END DATE ASKU, 40 MG (MILLIGRAM)
  7. CLOPIDOGREL TABLET   75MG / BRAND NAME NOT SPECIFIED [Suspect]
     Active Substance: CLOPIDOGREL BISULFATE
     Indication: ACUTE MYOCARDIAL INFARCTION
     Dosage: 75 MILLIGRAM DAILY;
     Dates: start: 202006, end: 20210312
  8. FERROFUMARAAT TABLET 200MG / BRAND NAME NOT SPECIFIED [Concomitant]
     Active Substance: FERROUS FUMARATE
     Dosage: THERAPY START DATE ASKU, THERAPY END DATE ASKU, 200 MG (MILLIGRAM)
  9. LEVODOPA/BENSERAZIDE TABLET 100/25MG / MADOPAR TABLET 125MG [Concomitant]
     Dosage: THERAPY START DATE ASKU, THERAPY END DATE ASKU, 100/25 MG, 1DF
  10. LEVODOPA/CARBIDOPA TABLET MGA 200/50MG / BRAND NAME NOT SPECIFIED [Concomitant]
     Dosage: THERAPY START DATE ASKU, THERAPY END DATE ASKU, 200/50 MG (MILLIGRAM), 1DF
  11. PANTOPRAZOL TABLET MSR 20MG / BRAND NAME NOT SPECIFIED [Concomitant]
     Active Substance: PANTOPRAZOLE
     Dosage: THERAPY START DATE ASKU, THERAPY END DATE ASKU?, 20 MG (MILLIGRAM)

REACTIONS (2)
  - Quadriplegia [Fatal]
  - Spinal epidural haemorrhage [Fatal]

NARRATIVE: CASE EVENT DATE: 20210311
